FAERS Safety Report 9109028 (Version 1)
Quarter: 2013Q1

REPORT INFORMATION
  Report Type: Spontaneous
  Country: US (occurrence: US)
  Receive Date: 20130222
  Receipt Date: 20130222
  Transmission Date: 20140127
  Serious: Yes (Hospitalization)
  Sender: FDA-Public Use
  Company Number: US-ELI_LILLY_AND_COMPANY-US201204000173

PATIENT
  Age: 57 Year
  Sex: Female

DRUGS (14)
  1. FORTEO [Suspect]
     Indication: OSTEOPOROSIS
     Dosage: 20 UG, QD
     Dates: start: 20120322
  2. DIAZEPAM [Concomitant]
     Indication: MUSCLE SPASMS
     Dosage: UNK, PRN
  3. ALPRAZOLAM [Concomitant]
     Dosage: 1 MG, TID
  4. OXYCODONE [Concomitant]
  5. OXYCONTIN [Concomitant]
     Dosage: 40 MG, TID
  6. ESCITALOPRAM [Concomitant]
     Dosage: 20 MG, EACH MORNING
  7. TIZANIDINE HYDROCHLORIDE [Concomitant]
     Dosage: 8 MG, QD
  8. GEN-VERAPAMIL - SLOW RELEASE [Concomitant]
     Dosage: 240 MG, EACH EVENING
  9. COUMADIN [Concomitant]
  10. ZONISAMIDE [Concomitant]
     Dosage: 400 MG, BID
  11. BACLOFEN [Concomitant]
     Dosage: 20 MG, TID
  12. PROAIR [Concomitant]
     Dosage: UNK, PRN
  13. OMEPRAZOLE [Concomitant]
     Dosage: 40 MG, QD
  14. VITAMIN D [Concomitant]
     Dosage: 2000 MG, TID

REACTIONS (18)
  - Haematoma [Recovered/Resolved]
  - Rib fracture [Recovered/Resolved]
  - Dyspnoea [Recovered/Resolved]
  - Fall [Recovered/Resolved]
  - Hypoaesthesia [Unknown]
  - Paraesthesia [Unknown]
  - Malaise [Unknown]
  - Heart rate abnormal [Unknown]
  - Abdominal discomfort [Unknown]
  - Mental impairment [Unknown]
  - Anxiety [Unknown]
  - Panic attack [Unknown]
  - Dysgeusia [Unknown]
  - Decreased appetite [Unknown]
  - Agitation [Unknown]
  - Limb discomfort [Unknown]
  - Muscle spasms [Unknown]
  - Nausea [Unknown]
